FAERS Safety Report 4378632-9 (Version None)
Quarter: 2004Q2

REPORT INFORMATION
  Report Type: 
  Country: None (occurrence: None)
  Receive Date: 20040610
  Receipt Date: 20040602
  Transmission Date: 20050107
  Serious: Yes (Life-Threatening, Hospitalization, Disabling)
  Sender: FDA-Public Use
  Company Number: 2004GB01324

PATIENT
  Age: 86 Year
  Sex: Male
  Weight: 74 kg

DRUGS (11)
  1. LISINOPRIL [Suspect]
     Dates: start: 20040203, end: 20040205
  2. TRIMETHOPRIM [Suspect]
     Indication: URINARY TRACT INFECTION
     Dosage: 200 MG BID PO
     Route: 048
     Dates: start: 20040203, end: 20040205
  3. ALLOPURINOL [Concomitant]
  4. LANSOPRAZOLE [Concomitant]
  5. THIAMINE [Concomitant]
  6. DOCUSATE [Concomitant]
  7. ASPIRIN [Concomitant]
  8. METOPROLOL TARTRATE [Concomitant]
  9. FUROSEMIDE [Concomitant]
  10. FLUOXETINE [Concomitant]
  11. MULTIVITAMIN [Concomitant]

REACTIONS (4)
  - OBSTRUCTIVE AIRWAYS DISORDER [None]
  - RESPIRATORY DISORDER [None]
  - SPEECH DISORDER [None]
  - SWOLLEN TONGUE [None]
